FAERS Safety Report 7342163-4 (Version None)
Quarter: 2011Q1

REPORT INFORMATION
  Report Type: 
  Country: None (occurrence: None)
  Receive Date: 20110309
  Receipt Date: 20110303
  Transmission Date: 20110831
  Serious: Yes (Life-Threatening, Hospitalization, Other)
  Sender: FDA-Public Use
  Company Number: RO-ASTRAZENECA-2011SE10569

PATIENT
  Age: 27 Year
  Sex: Male
  Weight: 104 kg

DRUGS (3)
  1. SERTRALINUM [Concomitant]
     Route: 048
     Dates: start: 20101004, end: 20110218
  2. LEVOMEPROMAZINUM [Concomitant]
     Route: 048
     Dates: start: 20100906, end: 20110218
  3. SEROQUEL XR [Suspect]
     Indication: SCHIZOPHRENIA
     Route: 048
     Dates: start: 20101201, end: 20110218

REACTIONS (2)
  - PULMONARY EMBOLISM [None]
  - DEEP VEIN THROMBOSIS [None]
